FAERS Safety Report 21420628 (Version 1)
Quarter: 2022Q4

REPORT INFORMATION
  Report Type: Spontaneous
  Country: DE (occurrence: DE)
  Receive Date: 20221007
  Receipt Date: 20221007
  Transmission Date: 20230113
  Serious: Yes (Life-Threatening, Hospitalization, Other)
  Sender: FDA-Public Use
  Company Number: DE-ADRED-07763-01

PATIENT
  Age: 51 Year
  Sex: Female
  Weight: 60 kg

DRUGS (12)
  1. PIPERACILLIN AND TAZOBACTAM [Suspect]
     Active Substance: PIPERACILLIN SODIUM\TAZOBACTAM SODIUM
     Indication: Product used for unknown indication
     Dosage: NK
     Route: 042
  2. NALOXONE HYDROCHLORIDE\TILIDINE HYDROCHLORIDE [Suspect]
     Active Substance: NALOXONE HYDROCHLORIDE\TILIDINE HYDROCHLORIDE
     Indication: Product used for unknown indication
     Dosage: 4|50 MG (2-0-2-0)
     Route: 048
  3. MOVICOL [Concomitant]
     Active Substance: POLYETHYLENE GLYCOL 3350\POTASSIUM CHLORIDE\SODIUM BICARBONATE\SODIUM CHLORIDE
     Indication: Product used for unknown indication
     Dosage: NEED
     Route: 048
  4. ACETAMINOPHEN [Concomitant]
     Active Substance: ACETAMINOPHEN
     Indication: Product used for unknown indication
     Dosage: 500 MILLIGRAM (1-1-1-1)
     Route: 048
  5. ESOMEPRAZOLE [Concomitant]
     Active Substance: ESOMEPRAZOLE
     Indication: Product used for unknown indication
     Dosage: 40 MILLIGRAM (1-0-1-0)
     Route: 048
  6. POTASSIUM CHLORIDE [Concomitant]
     Active Substance: POTASSIUM CHLORIDE
     Indication: Product used for unknown indication
     Dosage: (2-2-2-2)
     Route: 048
  7. MIRTAZAPINE [Concomitant]
     Active Substance: MIRTAZAPINE
     Indication: Product used for unknown indication
     Dosage: 15 MILLIGRAM (0-0-0-0.5)
     Route: 048
  8. Sab simplex [Concomitant]
     Indication: Product used for unknown indication
     Dosage: 15-15-15-0
     Route: 048
  9. ASPIRIN [Concomitant]
     Active Substance: ASPIRIN
     Indication: Product used for unknown indication
     Dosage: 100 MILLIGRAM (1-0-0-0)
     Route: 048
  10. METOCLOPRAMIDE [Concomitant]
     Active Substance: METOCLOPRAMIDE
     Indication: Product used for unknown indication
     Dosage: 10 MILLIGRAM (1-1-1-0)
     Route: 048
  11. RIOPAN MAGEN GEL [Concomitant]
     Indication: Product used for unknown indication
     Dosage: (1-1-1-1)
     Route: 048
  12. FRESUBIN 2 KCAL FIBRE [Concomitant]
     Indication: Product used for unknown indication
     Dosage: (1-1-1-0)
     Route: 048

REACTIONS (3)
  - Sepsis [Unknown]
  - Disturbance in attention [Unknown]
  - Depressed level of consciousness [Unknown]

NARRATIVE: CASE EVENT DATE: 20210319
